FAERS Safety Report 18716582 (Version 1)
Quarter: 2021Q1

REPORT INFORMATION
  Report Type: Spontaneous
  Country: DE (occurrence: DE)
  Receive Date: 20210108
  Receipt Date: 20210108
  Transmission Date: 20210419
  Serious: No
  Sender: FDA-Public Use
  Company Number: None

PATIENT
  Age: 18 Year
  Sex: Female
  Weight: 56 kg

DRUGS (2)
  1. MIRVASO [Suspect]
     Active Substance: BRIMONIDINE TARTRATE
     Indication: ROSACEA
     Dosage: ?          QUANTITY:5 PEA SIZED DROP;?
     Route: 061
     Dates: start: 20201224, end: 20210102
  2. SWINGO 20 (BIRTH CONTROL) [Concomitant]

REACTIONS (6)
  - Erythema [None]
  - Acne [None]
  - Hypersensitivity [None]
  - Burning sensation [None]
  - Flushing [None]
  - Dry skin [None]

NARRATIVE: CASE EVENT DATE: 20201226
